FAERS Safety Report 5703943-1 (Version None)
Quarter: 2008Q2

REPORT INFORMATION
  Report Type: 
  Country: None (occurrence: None)
  Receive Date: 20080409
  Receipt Date: 20080402
  Transmission Date: 20081010
  Serious: Yes (Hospitalization)
  Sender: FDA-Public Use
  Company Number: WAES 0804FRA00007

PATIENT
  Age: 51 Year
  Sex: Male

DRUGS (4)
  1. INDOCIN [Suspect]
     Indication: PAIN IN EXTREMITY
     Dosage: 75 MG/BID/PO
     Route: 048
     Dates: start: 20070701, end: 20071214
  2. DIDANOSINE [Concomitant]
  3. LOPINAVIR AND RITONAVIR [Concomitant]
  4. TENOFOVIR DISOPROXIL FUMARATE [Concomitant]

REACTIONS (2)
  - RENAL FAILURE [None]
  - RENAL TUBULAR DISORDER [None]
